FAERS Safety Report 7592940-X (Version None)
Quarter: 2011Q3

REPORT INFORMATION
  Report Type: 
  Country: None (occurrence: None)
  Receive Date: 20110706
  Receipt Date: 20110609
  Transmission Date: 20111222
  Serious: Yes (Hospitalization)
  Sender: FDA-Public Use
  Company Number: US-GLAXOSMITHKLINE-A0787906A

PATIENT
  Age: 68 Year
  Sex: Male

DRUGS (4)
  1. AVANDAMET [Suspect]
     Indication: DIABETES MELLITUS
     Route: 048
  2. CPAP [Concomitant]
     Indication: SLEEP APNOEA SYNDROME
  3. AVANDIA [Suspect]
     Indication: DIABETES MELLITUS
     Dosage: 4MG UNKNOWN
     Route: 048
     Dates: start: 20040101, end: 20090101
  4. THYROXIN [Concomitant]
     Dosage: .15MG PER DAY

REACTIONS (5)
  - CARDIAC DISORDER [None]
  - FEAR OF DEATH [None]
  - MYOCARDIAL INFARCTION [None]
  - FATIGUE [None]
  - ASTHENIA [None]
